FAERS Safety Report 25584514 (Version 2)
Quarter: 2025Q3

REPORT INFORMATION
  Report Type: Spontaneous
  Country: GB (occurrence: GB)
  Receive Date: 20250721
  Receipt Date: 20250901
  Transmission Date: 20251020
  Serious: Yes (Life-Threatening, Other)
  Sender: ACCORD
  Company Number: None

PATIENT
  Sex: Female

DRUGS (1)
  1. FINGOLIMOD [Suspect]
     Active Substance: FINGOLIMOD
     Indication: Multiple sclerosis
     Dates: start: 20141206, end: 20250423

REACTIONS (3)
  - JC polyomavirus test positive [Not Recovered/Not Resolved]
  - Central nervous system lesion [Unknown]
  - Progressive multifocal leukoencephalopathy [Unknown]
